FAERS Safety Report 20503183 (Version 2)
Quarter: 2022Q3

REPORT INFORMATION
  Report Type: Spontaneous
  Country: GB (occurrence: GB)
  Receive Date: 20220222
  Receipt Date: 20220921
  Transmission Date: 20221027
  Serious: Yes (Life-Threatening, Hospitalization, Disabling, Other)
  Sender: FDA-Public Use
  Company Number: GB-JNJFOC-20220225887

PATIENT
  Age: 54 Year
  Sex: Female

DRUGS (9)
  1. DOMPERIDONE [Suspect]
     Active Substance: DOMPERIDONE
     Indication: Product used for unknown indication
     Dosage: UNK
     Route: 048
  2. LANSOPRAZOLE [Suspect]
     Active Substance: LANSOPRAZOLE
     Indication: Product used for unknown indication
     Dosage: UNK
     Route: 065
  3. COVID-19 VACCINE NOS [Suspect]
     Active Substance: COVID-19 VACCINE NOS
     Indication: Product used for unknown indication
     Dosage: UNK (DOSE 3B)
     Route: 065
     Dates: start: 20211204, end: 20211204
  4. OMEPRAZOLE [Suspect]
     Active Substance: OMEPRAZOLE
     Indication: Gastrooesophageal reflux disease
     Dosage: 20 MILLIGRAM
     Route: 048
     Dates: start: 20190118, end: 20190120
  5. TRIMETHOPRIM [Suspect]
     Active Substance: TRIMETHOPRIM
     Indication: Urinary tract infection
     Dosage: 400 MILLIGRAM, QD
     Route: 048
     Dates: end: 20190120
  6. TRIMETHOPRIM [Suspect]
     Active Substance: TRIMETHOPRIM
     Dosage: 200 MILLIGRAM, QD
     Route: 048
     Dates: start: 20190118, end: 20190120
  7. BECLOMETHASONE DIPROPIONATE [Concomitant]
     Active Substance: BECLOMETHASONE DIPROPIONATE
     Indication: Product used for unknown indication
     Dosage: UNK, NASAL SPRAY
     Route: 065
  8. DULOXETINE [Concomitant]
     Active Substance: DULOXETINE
     Dosage: UNK
     Route: 065
  9. SOLIFENACIN [Concomitant]
     Active Substance: SOLIFENACIN
     Dosage: UNK
     Route: 065

REACTIONS (15)
  - Food poisoning [Not Recovered/Not Resolved]
  - Gastrointestinal pain [Not Recovered/Not Resolved]
  - Illness [Recovering/Resolving]
  - Nightmare [Not Recovered/Not Resolved]
  - Contusion [Not Recovered/Not Resolved]
  - Weight decreased [Unknown]
  - Vomiting [Unknown]
  - Diarrhoea [Recovered/Resolved]
  - Mucosal inflammation [Recovered/Resolved]
  - Genital ulceration [Recovered/Resolved]
  - Genital pain [Recovered/Resolved]
  - Abdominal pain [Recovered/Resolved]
  - Abdominal pain upper [Recovering/Resolving]
  - Drug interaction [Unknown]
  - Oral pain [Recovering/Resolving]

NARRATIVE: CASE EVENT DATE: 20190121
